FAERS Safety Report 9391615 (Version 4)
Quarter: 2013Q3

REPORT INFORMATION
  Report Type: Spontaneous
  Country: US (occurrence: US)
  Receive Date: 20130709
  Receipt Date: 20130905
  Transmission Date: 20140515
  Serious: Yes (Other)
  Sender: FDA-Public Use
  Company Number: US-GLAXOSMITHKLINE-A1029261A

PATIENT
  Age: 74 Year
  Sex: Male
  Weight: 115.9 kg

DRUGS (2)
  1. ADVAIR [Suspect]
     Indication: CHRONIC OBSTRUCTIVE PULMONARY DISEASE
     Dosage: 1PUFF TWICE PER DAY
     Route: 055
  2. SPIRIVA [Concomitant]

REACTIONS (5)
  - Chronic obstructive pulmonary disease [Recovered/Resolved]
  - Malaise [Recovered/Resolved]
  - Oxygen supplementation [Recovered/Resolved]
  - Drug administration error [Unknown]
  - Product quality issue [Unknown]
